FAERS Safety Report 8889734 (Version 2)
Quarter: 2013Q1

REPORT INFORMATION
  Report Type: Spontaneous
  Country: AU (occurrence: AU)
  Receive Date: 20121107
  Receipt Date: 20130117
  Transmission Date: 20140127
  Serious: Yes (Other)
  Sender: FDA-Public Use
  Company Number: AU-009507513-1210AUS013361

PATIENT
  Age: 60 Year
  Sex: Female

DRUGS (1)
  1. FOSAMAX PLUS [Suspect]
     Dosage: UNK
     Route: 048
     Dates: start: 20021015

REACTIONS (2)
  - Femur fracture [Unknown]
  - Fall [Unknown]
